FAERS Safety Report 20574441 (Version 2)
Quarter: 2022Q1

REPORT INFORMATION
  Report Type: Spontaneous
  Country: KR (occurrence: None)
  Receive Date: 20220309
  Receipt Date: 20220316
  Transmission Date: 20220423
  Serious: Yes (Hospitalization)
  Sender: FDA-Public Use
  Company Number: KR-Eisai Medical Research-EC-2022-109830

PATIENT
  Age: 68 Year
  Sex: Female

DRUGS (1)
  1. FYCOMPA [Suspect]
     Active Substance: PERAMPANEL
     Indication: Seizure
     Route: 048
     Dates: start: 2021

REACTIONS (1)
  - Ligament rupture [Recovering/Resolving]

NARRATIVE: CASE EVENT DATE: 20220201
